FAERS Safety Report 16769316 (Version 2)
Quarter: 2019Q3

REPORT INFORMATION
  Report Type: Spontaneous
  Country: US (occurrence: US)
  Receive Date: 20190903
  Receipt Date: 20190914
  Transmission Date: 20191005
  Serious: Yes (Life-Threatening, Hospitalization)
  Sender: FDA-Public Use
  Company Number: US-TEVA-2019-US-1102361

PATIENT
  Age: 74 Year
  Sex: Male
  Weight: 72.7 kg

DRUGS (1)
  1. WARFARIN [Suspect]
     Active Substance: WARFARIN
     Indication: ATRIAL FIBRILLATION
     Dosage: 3 MILLIGRAM DAILY;
     Route: 048

REACTIONS (8)
  - Cerebral haematoma [Recovering/Resolving]
  - Facial paralysis [Recovering/Resolving]
  - Haemorrhagic stroke [Recovering/Resolving]
  - Cerebral haemorrhage [Recovering/Resolving]
  - Loss of personal independence in daily activities [Not Recovered/Not Resolved]
  - Coagulation factor deficiency [Recovering/Resolving]
  - Paralysis [Recovering/Resolving]
  - Brain herniation [Recovering/Resolving]
